FAERS Safety Report 8087466-3 (Version None)
Quarter: 2012Q1

REPORT INFORMATION
  Report Type: 
  Country: None (occurrence: None)
  Receive Date: 20120128
  Receipt Date: 20110524
  Transmission Date: 20120608
  Serious: No
  Sender: FDA-Public Use
  Company Number: US-ABBOTT-11P-163-0728147-00

PATIENT
  Sex: Female
  Weight: 74.456 kg

DRUGS (5)
  1. UNKNOWN DIABETIC MEDICATION [Concomitant]
     Indication: DIABETES MELLITUS
  2. SYNTHROID [Concomitant]
     Indication: HYPOTHYROIDISM
     Dates: start: 20010101
  3. UNKNOWN CARDIAC MEDICATION [Concomitant]
     Indication: HEART RATE IRREGULAR
  4. HUMIRA [Suspect]
     Indication: RHEUMATOID ARTHRITIS
     Route: 058
     Dates: start: 20110214
  5. UNKNOWN BLOOD PRESSURE MEDICATION [Concomitant]
     Indication: HYPERTENSION

REACTIONS (4)
  - MUSCLE SPASMS [None]
  - BACK PAIN [None]
  - PAIN IN EXTREMITY [None]
  - NIGHT SWEATS [None]
